FAERS Safety Report 6761719-0 (Version None)
Quarter: 2010Q2

REPORT INFORMATION
  Report Type: 
  Country: None (occurrence: None)
  Receive Date: 20100609
  Receipt Date: 20100531
  Transmission Date: 20101027
  Serious: Yes (Other)
  Sender: FDA-Public Use
  Company Number: FR-ABBOTT-10P-056-0639647-00

PATIENT
  Sex: Female
  Weight: 51 kg

DRUGS (3)
  1. HUMIRA [Suspect]
     Indication: RHEUMATOID ARTHRITIS
     Dates: end: 20090801
  2. HUMIRA [Suspect]
     Route: 058
     Dates: start: 20100413
  3. CORTANCYL [Concomitant]
     Indication: RHEUMATOID ARTHRITIS
     Route: 048

REACTIONS (4)
  - CHEST DISCOMFORT [None]
  - MALAISE [None]
  - PAINFUL RESPIRATION [None]
  - TACHYCARDIA [None]
